FAERS Safety Report 10464774 (Version 1)
Quarter: 2014Q3

REPORT INFORMATION
  Report Type: Spontaneous
  Country: JP (occurrence: JP)
  Receive Date: 20140919
  Receipt Date: 20140919
  Transmission Date: 20150326
  Serious: Yes (Hospitalization)
  Sender: FDA-Public Use
  Company Number: JP-SUCAMPO AG-SPI201400641

PATIENT
  Age: 2 Decade
  Sex: Female

DRUGS (2)
  1. AMITIZA [Suspect]
     Active Substance: LUBIPROSTONE
     Indication: CONSTIPATION
     Dosage: 24 MCG, UNK
     Route: 048
  2. PURSENNID [Concomitant]
     Active Substance: SENNOSIDES A AND B CALCIUM
     Dosage: UNK, PRN

REACTIONS (3)
  - Hospitalisation [Unknown]
  - Diarrhoea [Unknown]
  - Nausea [Unknown]
